FAERS Safety Report 10377825 (Version 6)
Quarter: 2015Q3

REPORT INFORMATION
  Report Type: Report from Study
  Country: US (occurrence: US)
  Receive Date: 20140812
  Receipt Date: 20150717
  Transmission Date: 20151125
  Serious: Yes (Hospitalization, Other)
  Sender: FDA-Public Use
  Company Number: US-SA-2014SA013135

PATIENT
  Age: 60 Year
  Sex: Female

DRUGS (5)
  1. AUBAGIO [Suspect]
     Active Substance: TERIFLUNOMIDE
     Indication: MULTIPLE SCLEROSIS
     Route: 048
     Dates: start: 20150710
  2. VITAMIN A [Suspect]
     Active Substance: VITAMIN A
     Route: 065
  3. CALCIUM [Concomitant]
     Active Substance: CALCIUM
  4. AUBAGIO [Suspect]
     Active Substance: TERIFLUNOMIDE
     Indication: MULTIPLE SCLEROSIS
     Route: 048
     Dates: start: 20131101, end: 20150604
  5. VITAMIN D3 [Concomitant]
     Active Substance: CHOLECALCIFEROL

REACTIONS (20)
  - Gait disturbance [Not Recovered/Not Resolved]
  - Insomnia [Unknown]
  - Vitreous detachment [Unknown]
  - Head discomfort [Unknown]
  - Feeling abnormal [Not Recovered/Not Resolved]
  - Unevaluable event [Unknown]
  - Dizziness [Unknown]
  - Liver injury [Unknown]
  - Therapeutic response unexpected [Unknown]
  - Inappropriate affect [Unknown]
  - Tremor [Unknown]
  - Toxicity to various agents [Unknown]
  - Dizziness [Recovered/Resolved]
  - Fatigue [Unknown]
  - Feeling abnormal [Unknown]
  - Muscle spasms [Unknown]
  - Paraesthesia [Unknown]
  - Myalgia [Unknown]
  - Vitreous floaters [Unknown]
  - Depression [Not Recovered/Not Resolved]

NARRATIVE: CASE EVENT DATE: 201401
